FAERS Safety Report 8996729 (Version 1)
Quarter: 2012Q4

REPORT INFORMATION
  Report Type: Spontaneous
  Country: US (occurrence: None)
  Receive Date: 20121228
  Receipt Date: 20121228
  Transmission Date: 20130627
  Serious: Yes (Hospitalization)
  Sender: FDA-Public Use
  Company Number: None

PATIENT
  Age: 49 Year
  Sex: Female
  Weight: 68.04 kg

DRUGS (1)
  1. CELEXA [Suspect]
     Indication: DEPRESSION

REACTIONS (5)
  - Dizziness [None]
  - Vomiting [None]
  - Flatulence [None]
  - Tremor [None]
  - Palpitations [None]
